FAERS Safety Report 4884175-6 (Version None)
Quarter: 2005Q4

REPORT INFORMATION
  Report Type: 
  Country: None (occurrence: None)
  Receive Date: 20051201
  Receipt Date: 20050909
  Transmission Date: 20060501
  Serious: No
  Sender: FDA-Public Use
  Company Number: 2005PV001974

PATIENT
  Age: 51 Year
  Sex: Female
  Weight: 125.8278 kg

DRUGS (3)
  1. BYETTA [Suspect]
     Indication: DIABETES MELLITUS
     Dosage: 5 MCG; BID; SC
     Route: 058
     Dates: start: 20050829
  2. LANTUS [Concomitant]
  3. METFORMIN [Concomitant]

REACTIONS (1)
  - WEIGHT DECREASED [None]
